FAERS Safety Report 20539792 (Version 1)
Quarter: 2022Q1

REPORT INFORMATION
  Report Type: Report from Study
  Country: US (occurrence: US)
  Receive Date: 20220302
  Receipt Date: 20220302
  Transmission Date: 20220423
  Serious: Yes (Hospitalization, Other)
  Sender: FDA-Public Use
  Company Number: US-JNJFOC-20211118823

PATIENT
  Age: 64 Year
  Sex: Female

DRUGS (1)
  1. RIVAROXABAN [Suspect]
     Active Substance: RIVAROXABAN
     Indication: Coronary artery disease
     Route: 048
     Dates: start: 20211008

REACTIONS (4)
  - Dementia Alzheimer^s type [Unknown]
  - Transient ischaemic attack [Unknown]
  - Peripheral arterial occlusive disease [Unknown]
  - Pain [Unknown]

NARRATIVE: CASE EVENT DATE: 20210101
